FAERS Safety Report 20827942 (Version 2)
Quarter: 2022Q2

REPORT INFORMATION
  Report Type: Spontaneous
  Country: US (occurrence: US)
  Receive Date: 20220513
  Receipt Date: 20220624
  Transmission Date: 20220721
  Serious: No
  Sender: FDA-Public Use
  Company Number: US-PFIZER INC-202101324832

PATIENT
  Age: 63 Year

DRUGS (2)
  1. CELONTIN [Suspect]
     Active Substance: METHSUXIMIDE
     Indication: Epilepsy
     Dosage: 300 MG
  2. CELONTIN [Suspect]
     Active Substance: METHSUXIMIDE
     Dosage: 1 CAPSULE 4 TIMES A DAY WITH FOOD
     Route: 048

REACTIONS (9)
  - Influenza [Unknown]
  - Illness [Unknown]
  - Musculoskeletal discomfort [Unknown]
  - Stress [Unknown]
  - Dizziness [Unknown]
  - Anxiety [Unknown]
  - Frustration tolerance decreased [Unknown]
  - Product dose omission issue [Unknown]
  - Off label use [Unknown]
